FAERS Safety Report 11426804 (Version 1)
Quarter: 2015Q3

REPORT INFORMATION
  Report Type: Spontaneous
  Country: US (occurrence: US)
  Receive Date: 20150821
  Receipt Date: 20150821
  Transmission Date: 20151125
  Serious: No
  Sender: FDA-Public Use
  Company Number: US-ELI_LILLY_AND_COMPANY-US201308000990

PATIENT
  Sex: Male

DRUGS (2)
  1. CIALIS [Suspect]
     Active Substance: TADALAFIL
     Indication: ERECTILE DYSFUNCTION
     Dosage: 5 MG, UNK
     Dates: start: 20130724
  2. CIALIS [Suspect]
     Active Substance: TADALAFIL
     Dosage: 25 MG, SINGLE
     Dates: start: 20130729, end: 20130729

REACTIONS (4)
  - Lip swelling [Unknown]
  - Overdose [Unknown]
  - Drug ineffective [Unknown]
  - Speech disorder [Unknown]
